FAERS Safety Report 6663825-8 (Version None)
Quarter: 2010Q1

REPORT INFORMATION
  Report Type: 
  Country: None (occurrence: None)
  Receive Date: 20100325
  Receipt Date: 20091201
  Transmission Date: 20100710
  Serious: No
  Sender: FDA-Public Use
  Company Number: 2009-00777

PATIENT
  Age: 76 Year
  Sex: Female
  Weight: 63.5036 kg

DRUGS (7)
  1. COLD REMEDY LIQUI-LOZ [Suspect]
     Indication: NASOPHARYNGITIS
     Dosage: ONE DOSE
     Dates: start: 20091130, end: 20091130
  2. MUCINEX [Concomitant]
  3. PRILOSEC [Concomitant]
  4. COMBIVENT [Concomitant]
  5. ASMANEX TWISTHALER [Concomitant]
  6. ALBUTEROL [Concomitant]
  7. NEBULIZED [Concomitant]

REACTIONS (1)
  - AGEUSIA [None]
